FAERS Safety Report 14300051 (Version 3)
Quarter: 2018Q1

REPORT INFORMATION
  Report Type: Spontaneous
  Country: US (occurrence: US)
  Receive Date: 20171219
  Receipt Date: 20180124
  Transmission Date: 20180509
  Serious: Yes (Other)
  Sender: FDA-Public Use
  Company Number: US-AMGEN-USASP2017185720

PATIENT

DRUGS (1)
  1. ENBREL [Suspect]
     Active Substance: ETANERCEPT
     Indication: PRODUCT USED FOR UNKNOWN INDICATION
     Dosage: UNK
     Route: 042

REACTIONS (8)
  - Lymphoma [Unknown]
  - Pneumonia [Unknown]
  - Infection [Unknown]
  - Angiosarcoma [Unknown]
  - Dyspnoea [Unknown]
  - Depression [Unknown]
  - Memory impairment [Unknown]
  - Tremor [Unknown]
